FAERS Safety Report 5887229-0 (Version None)
Quarter: 2008Q3

REPORT INFORMATION
  Report Type: 
  Country: None (occurrence: None)
  Receive Date: 20080915
  Receipt Date: 20080901
  Transmission Date: 20090109
  Serious: Yes (Hospitalization)
  Sender: FDA-Public Use
  Company Number: 033499

PATIENT
  Age: 57 Year
  Sex: Female

DRUGS (5)
  1. FLUCONAZOLE [Suspect]
     Indication: PNEUMONIA CRYPTOCOCCAL
     Dosage: 200 MG, QD
  2. AMITRIPTYLINE HCL [Suspect]
     Indication: DEPRESSION
  3. LISINOPRIL [Concomitant]
  4. SERTRALINE [Concomitant]
  5. IRON (IRON) [Concomitant]

REACTIONS (12)
  - BLOOD POTASSIUM DECREASED [None]
  - BREATH SOUNDS ABNORMAL [None]
  - CACHEXIA [None]
  - DIZZINESS [None]
  - DRUG INTERACTION [None]
  - ELECTROCARDIOGRAM QT PROLONGED [None]
  - FATIGUE [None]
  - LOSS OF CONSCIOUSNESS [None]
  - PRESYNCOPE [None]
  - SINUS BRADYCARDIA [None]
  - TORSADE DE POINTES [None]
  - VENTRICULAR EXTRASYSTOLES [None]
